FAERS Safety Report 13315544 (Version 1)
Quarter: 2017Q1

REPORT INFORMATION
  Report Type: Spontaneous
  Country: KR (occurrence: KR)
  Receive Date: 20170310
  Receipt Date: 20170310
  Transmission Date: 20170428
  Serious: Yes (Other)
  Sender: FDA-Public Use
  Company Number: KR-BAXTER-2017BAX009661

PATIENT
  Age: 82 Year
  Sex: Male

DRUGS (2)
  1. BAXTER METRONIDAZOLE INJ. 500MG [Suspect]
     Active Substance: METRONIDAZOLE
     Indication: OFF LABEL USE
  2. BAXTER METRONIDAZOLE INJ. 500MG [Suspect]
     Active Substance: METRONIDAZOLE
     Indication: CHOLECYSTITIS ACUTE
     Dosage: ESTIMATED CUMULATIVE DOSE OF APPROXIMATELY 30 GRAMS
     Route: 065

REACTIONS (2)
  - Myoclonus [Recovered/Resolved]
  - Central nervous system lesion [Recovered/Resolved]
